FAERS Safety Report 14647969 (Version 2)
Quarter: 2018Q3

REPORT INFORMATION
  Report Type: Spontaneous
  Country: ES (occurrence: ES)
  Receive Date: 20180316
  Receipt Date: 20180724
  Transmission Date: 20181010
  Serious: Yes (Hospitalization)
  Sender: FDA-Public Use
  Company Number: ES-TEVA-2018-ES-868349

PATIENT
  Age: 60 Year
  Sex: Female

DRUGS (3)
  1. TRAMADOL. [Suspect]
     Active Substance: TRAMADOL
     Dosage: 150MG EVERY 12 HOURS
     Route: 048
     Dates: start: 20171108, end: 20171222
  2. PRISTIQ EXTENDED?RELEASE [Interacting]
     Active Substance: DESVENLAFAXINE SUCCINATE
     Indication: AGITATED DEPRESSION
     Dosage: 200MG EVERY 24 HOURS
     Route: 048
     Dates: start: 20160419, end: 20171230
  3. REXER 30 MG FILM?COATED TABLETS, 30 TABLETS [Interacting]
     Active Substance: MIRTAZAPINE
     Indication: AGITATED DEPRESSION
     Route: 048
     Dates: start: 20160419, end: 201801

REACTIONS (2)
  - Drug interaction [Unknown]
  - Serotonin syndrome [Recovering/Resolving]

NARRATIVE: CASE EVENT DATE: 20171215
